FAERS Safety Report 4509041-7 (Version None)
Quarter: 2004Q4

REPORT INFORMATION
  Report Type: 
  Country: None (occurrence: None)
  Receive Date: 20041122
  Receipt Date: 20041122
  Transmission Date: 20050328
  Serious: Yes (Life-Threatening, Hospitalization)
  Sender: FDA-Public Use
  Company Number: None

PATIENT
  Sex: Female
  Weight: 52.1637 kg

DRUGS (2)
  1. WELLBUTRIN XL [Suspect]
     Indication: ATTENTION DEFICIT/HYPERACTIVITY DISORDER
     Dosage: 1TABLET Q AM PO
     Route: 048
     Dates: start: 19980101, end: 20041108
  2. WELLBUTRIN XL [Suspect]
     Indication: DEPRESSION
     Dosage: 1TABLET Q AM PO
     Route: 048
     Dates: start: 19980101, end: 20041108

REACTIONS (2)
  - CONFUSIONAL STATE [None]
  - GRAND MAL CONVULSION [None]
